FAERS Safety Report 15614106 (Version 3)
Quarter: 2018Q4

REPORT INFORMATION
  Report Type: Report from Study
  Country: BR (occurrence: BR)
  Receive Date: 20181113
  Receipt Date: 20181221
  Transmission Date: 20190205
  Serious: Yes (Life-Threatening, Other)
  Sender: FDA-Public Use
  Company Number: PHHY2017BR189238

PATIENT
  Sex: Female
  Weight: 63 kg

DRUGS (12)
  1. DIOVAN [Suspect]
     Active Substance: VALSARTAN
     Indication: HYPERTENSION
     Dosage: 80 MG, QD
     Route: 048
  2. ATENOLOL. [Suspect]
     Active Substance: ATENOLOL
     Indication: HYPERTENSION
     Dosage: 25 MG, QD
     Route: 048
  3. LASIX [Concomitant]
     Active Substance: FUROSEMIDE
     Indication: HYPERTENSION
     Dosage: 1 DF, UNK
     Route: 065
  4. ADALAT [Concomitant]
     Active Substance: NIFEDIPINE
     Indication: HYPERTENSION
     Dosage: 1 DF, UNK
     Route: 060
  5. DIOVAN [Suspect]
     Active Substance: VALSARTAN
     Dosage: 80 MG, BID (160 MG)
     Route: 048
  6. DIOVAN HCT [Suspect]
     Active Substance: HYDROCHLOROTHIAZIDE\VALSARTAN
     Dosage: 1 DF, Q12H (12.5 MG HYDROCHLORTHIAZIDE, 160 MG VALSARTAN), ABOUT TWO YEARS AGO
     Route: 048
  7. DIOVAN [Suspect]
     Active Substance: VALSARTAN
     Dosage: 80 MG, QD, APPROXIMATELY ONE YEAR
     Route: 048
  8. DIOVAN HCT [Suspect]
     Active Substance: HYDROCHLOROTHIAZIDE\VALSARTAN
     Indication: HYPERTENSION
     Dosage: 1 DF, QD
     Route: 048
  9. DIOVAN HCT [Suspect]
     Active Substance: HYDROCHLOROTHIAZIDE\VALSARTAN
     Dosage: 1 DF (HYDROCHLOROTHIAZIDE 25 MG AND VALSARTAN 160 MG), QD (IN MORNING)
     Route: 048
  10. AMLODIPINE [Suspect]
     Active Substance: AMLODIPINE BESYLATE
     Indication: HYPERTENSION
     Dosage: 5 MG, QD
     Route: 048
  11. DIOVAN AMLO [Suspect]
     Active Substance: AMLODIPINE\VALSARTAN
     Indication: HYPERTENSION
     Dosage: 1 DF, QD
     Route: 048
  12. ASA [Concomitant]
     Active Substance: ASPIRIN
     Indication: BLOOD PRESSURE INCREASED
     Dosage: 100 MG, QD,ONE AT LUNCHTIME
     Route: 048

REACTIONS (9)
  - Blood pressure fluctuation [Unknown]
  - Product dispensing error [Unknown]
  - Peripheral swelling [Recovered/Resolved]
  - Blood pressure abnormal [Recovered/Resolved]
  - Fear [Unknown]
  - Feeling abnormal [Unknown]
  - Malaise [Unknown]
  - Tachycardia [Recovered/Resolved]
  - Headache [Recovered/Resolved]
